FAERS Safety Report 7775954-6 (Version None)
Quarter: 2011Q3

REPORT INFORMATION
  Report Type: 
  Country: None (occurrence: None)
  Receive Date: 20110923
  Receipt Date: 20110920
  Transmission Date: 20111222
  Serious: Yes (Other)
  Sender: FDA-Public Use
  Company Number: JP-MERCK-1109USA02533

PATIENT
  Age: 51 Year
  Sex: Female

DRUGS (1)
  1. PEPCID [Suspect]
     Route: 048
     Dates: start: 20110101, end: 20110201

REACTIONS (1)
  - LIVER DISORDER [None]
